FAERS Safety Report 6604603-5 (Version None)
Quarter: 2010Q1

REPORT INFORMATION
  Report Type: 
  Country: None (occurrence: None)
  Receive Date: 20100226
  Receipt Date: 20091218
  Transmission Date: 20100710
  Serious: No
  Sender: FDA-Public Use
  Company Number: A0835935A

PATIENT
  Age: 52 Year
  Sex: Male

DRUGS (5)
  1. LAMICTAL CD [Suspect]
     Indication: BIPOLAR DISORDER
     Dosage: 100MG TWICE PER DAY
     Route: 048
     Dates: start: 20091101
  2. AMBIEN [Concomitant]
  3. BLOOD PRESSURE MEDICINES [Concomitant]
  4. PRILOSEC [Concomitant]
  5. ANTI-CHOLESTEROL MEDICATION [Concomitant]

REACTIONS (2)
  - ARTHRALGIA [None]
  - INSOMNIA [None]
